FAERS Safety Report 9815417 (Version 2)
Quarter: 2014Q1

REPORT INFORMATION
  Report Type: Report from Study
  Country: US (occurrence: US)
  Receive Date: 20140114
  Receipt Date: 20140114
  Transmission Date: 20141002
  Serious: Yes (Hospitalization, Other)
  Sender: FDA-Public Use
  Company Number: US-ROCHE-1033148

PATIENT
  Age: 73 Year
  Sex: Female
  Weight: 73.3 kg

DRUGS (3)
  1. VISMODEGIB [Suspect]
     Indication: SMALL CELL LUNG CANCER
     Dosage: LAST DOSE PRIOR TO SAE: 06 JUL 2011, TOTAL DOSE ADMINISTERED THIS COURSE
     Route: 048
     Dates: start: 20110413, end: 20111007
  2. ETOPOSIDE [Suspect]
     Indication: SMALL CELL LUNG CANCER
     Route: 042
     Dates: start: 20110413
  3. CISPLATIN [Suspect]
     Indication: SMALL CELL LUNG CANCER
     Route: 042
     Dates: start: 20110413

REACTIONS (2)
  - Lung infection [Recovered/Resolved]
  - Anaemia [Recovered/Resolved]
